FAERS Safety Report 15214206 (Version 1)
Quarter: 2018Q3

REPORT INFORMATION
  Report Type: Spontaneous
  Country: US (occurrence: US)
  Receive Date: 20180702
  Receipt Date: 20180702
  Transmission Date: 20181010
  Serious: Yes (Life-Threatening, Hospitalization)
  Sender: FDA-Public Use
  Company Number: None

PATIENT
  Age: 94 Year
  Sex: Male
  Weight: 75 kg

DRUGS (1)
  1. AMOXICILLIN/CLAVULANATE [Suspect]
     Active Substance: AMOXICILLIN\CLAVULANATE POTASSIUM
     Indication: WOUND INFECTION
     Dosage: ?          OTHER DOSE:875/125 MG;?
     Route: 048
     Dates: start: 20180107, end: 20180201

REACTIONS (1)
  - Hepatic cirrhosis [None]

NARRATIVE: CASE EVENT DATE: 20180201
